FAERS Safety Report 5344298-4 (Version None)
Quarter: 2007Q2

REPORT INFORMATION
  Report Type: 
  Country: None (occurrence: None)
  Receive Date: 20070604
  Receipt Date: 20070524
  Transmission Date: 20071010
  Serious: Yes (Life-Threatening, Hospitalization)
  Sender: FDA-Public Use
  Company Number: US-JNJFOC-20070506062

PATIENT
  Age: 72 Year
  Sex: Male

DRUGS (2)
  1. TOPIRAMATE [Suspect]
  2. TOPIRAMATE [Suspect]
     Indication: INTENTION TREMOR

REACTIONS (2)
  - CHEMICAL POISONING [None]
  - SUICIDE ATTEMPT [None]
